FAERS Safety Report 9499081 (Version 2)
Quarter: 2015Q4

REPORT INFORMATION
  Report Type: Report from Study
  Country: US (occurrence: US)
  Receive Date: 20130904
  Receipt Date: 20151008
  Transmission Date: 20160305
  Serious: Yes (Hospitalization)
  Sender: FDA-Public Use
  Company Number: US-ROCHE-1266780

PATIENT
  Sex: Female
  Weight: 86.26 kg

DRUGS (35)
  1. NEXIUM [Concomitant]
     Active Substance: ESOMEPRAZOLE MAGNESIUM
     Route: 065
  2. PATADAY [Concomitant]
     Active Substance: OLOPATADINE HYDROCHLORIDE
     Dosage: DROP INTO AFFECTED EYE ONCE A DAY
     Route: 065
  3. PATANASE [Concomitant]
     Active Substance: OLOPATADINE HYDROCHLORIDE
     Dosage: 0.6% SOLUTION, 1 SPRAYS, TWICE DAILY
     Route: 045
  4. ATROVENT HFA [Concomitant]
     Active Substance: IPRATROPIUM BROMIDE
     Dosage: 17MCG/ACT, 2PUFFS
     Route: 065
  5. XOLAIR [Suspect]
     Active Substance: OMALIZUMAB
     Route: 042
  6. ROBITUSSIN (GUAIFENESIN) [Concomitant]
     Active Substance: GUAIFENESIN
     Dosage: AS DIRECTED
     Route: 065
  7. BENADRYL [Concomitant]
     Active Substance: DIPHENHYDRAMINE HYDROCHLORIDE
     Dosage: AS NEEDED
     Route: 048
  8. ZANAFLEX [Concomitant]
     Active Substance: TIZANIDINE HYDROCHLORIDE
     Dosage: AS NEEDED
     Route: 048
  9. SUDAFED (UNITED STATES) [Concomitant]
     Dosage: AS NEEDED
     Route: 048
  10. LASIX [Concomitant]
     Active Substance: FUROSEMIDE
  11. XOLAIR [Suspect]
     Active Substance: OMALIZUMAB
     Route: 058
  12. IPRATROPIUM [Concomitant]
     Active Substance: IPRATROPIUM
  13. ADVAIR HFA [Concomitant]
     Active Substance: FLUTICASONE PROPIONATE\SALMETEROL XINAFOATE
     Dosage: 250/50
     Route: 065
  14. DOXYCYCLINE HYCLATE. [Concomitant]
     Active Substance: DOXYCYCLINE HYCLATE
     Route: 065
  15. ALBUTEROL. [Concomitant]
     Active Substance: ALBUTEROL
     Dosage: 0.5-2.5MG IN 3ML SOL, 3MLS 4 TIMES A DAY
     Route: 065
  16. XOPENEX [Concomitant]
     Active Substance: LEVALBUTEROL HYDROCHLORIDE
     Dosage: 1 VIAL EVRY 6 HRS
     Route: 065
  17. ADRENALINE [Concomitant]
     Active Substance: EPINEPHRINE
     Route: 065
  18. FORMOTEROL FUMARATE [Concomitant]
     Active Substance: FORMOTEROL FUMARATE
     Dosage: 160-4.5MCG/ACT, 2 PUFF
     Route: 045
  19. ALPRAZOLAM. [Concomitant]
     Active Substance: ALPRAZOLAM
     Route: 048
  20. XOLAIR [Suspect]
     Active Substance: OMALIZUMAB
     Indication: ASTHMA
     Route: 058
     Dates: start: 201002
  21. ALBUTEROL SULFATE. [Concomitant]
     Active Substance: ALBUTEROL SULFATE
     Dosage: 2.5MG/3ML NEB AS NEEDED EVERY 4-6 HOURS
     Route: 045
  22. PROZAC [Concomitant]
     Active Substance: FLUOXETINE HYDROCHLORIDE
     Route: 065
  23. NEURONTIN [Concomitant]
     Active Substance: GABAPENTIN
     Route: 048
  24. BUDESONIDE. [Concomitant]
     Active Substance: BUDESONIDE
     Dosage: 160-4.5MCG/ACT, 2 PUFF
     Route: 045
  25. FEXOFENADINE [Concomitant]
     Active Substance: FEXOFENADINE\FEXOFENADINE HYDROCHLORIDE
     Route: 065
  26. KETOTIFEN FUMARATE. [Concomitant]
     Active Substance: KETOTIFEN FUMARATE
     Dosage: 1 DROP INTO AFFECTED EYE TWICE A DAY PRN
     Route: 065
  27. TOBRAMYCIN. [Concomitant]
     Active Substance: TOBRAMYCIN
     Dosage: IN 5ML NEB 5ML TWICE A DAY
     Route: 065
  28. VENTOLIN HFA [Concomitant]
     Active Substance: ALBUTEROL SULFATE
     Dosage: 108(90BASE)MCG/ACT 2 PUFFS PRN Q4 HOURS
     Route: 045
  29. SYMBICORT [Concomitant]
     Active Substance: BUDESONIDE\FORMOTEROL FUMARATE DIHYDRATE
     Dosage: 160-4.5 MCG/ACT 2 PUFFS TWICE A DAY
     Route: 045
  30. FLUTICASONE PROPIONATE. [Concomitant]
     Active Substance: FLUTICASONE PROPIONATE
     Dosage: 50MCG/ACT, 1 SPRAY IN EACH NOSTRIL
     Route: 045
  31. MUCINEX [Concomitant]
     Active Substance: GUAIFENESIN
     Route: 065
  32. MEDROL [Concomitant]
     Active Substance: METHYLPREDNISOLONE
     Route: 065
  33. ZYRTEC [Concomitant]
     Active Substance: CETIRIZINE HYDROCHLORIDE
     Route: 065
  34. AMPHOTERICIN B. [Concomitant]
     Active Substance: AMPHOTERICIN B
     Dosage: 905 U/MG POWDER AS DIRECTED
     Route: 065
  35. PROAIR HFA [Concomitant]
     Active Substance: ALBUTEROL SULFATE
     Dosage: 108(90BASE)MCG/ACT, 2 PUFFS AS NEEDED, EVERY 4-6HR
     Route: 065

REACTIONS (40)
  - Wheezing [Unknown]
  - Nasal pruritus [Unknown]
  - Dyspepsia [Unknown]
  - Nasal turbinate abnormality [Unknown]
  - Chest discomfort [Unknown]
  - Dyspnoea [Unknown]
  - Feeling abnormal [Unknown]
  - Oropharyngeal pain [Unknown]
  - Joint swelling [Unknown]
  - Anxiety [Unknown]
  - Fatigue [Unknown]
  - Asthma [Unknown]
  - Nasal oedema [Unknown]
  - Sinus headache [Unknown]
  - Obstructive airways disorder [Unknown]
  - Eye pruritus [Unknown]
  - Cough [Unknown]
  - Depression [Unknown]
  - Angioedema [Unknown]
  - Choking sensation [Unknown]
  - Rash [Unknown]
  - Musculoskeletal discomfort [Unknown]
  - Breath sounds abnormal [Unknown]
  - Blood pressure abnormal [Unknown]
  - Irritability [Unknown]
  - Nausea [Unknown]
  - Abdominal pain upper [Unknown]
  - Malaise [Unknown]
  - Urticaria [Unknown]
  - Upper-airway cough syndrome [Unknown]
  - Erythema [Unknown]
  - Purulent discharge [Unknown]
  - Pruritus [Unknown]
  - Paranasal sinus discomfort [Unknown]
  - Osteoporosis [Unknown]
  - Respiratory tract congestion [Unknown]
  - Dyspnoea exertional [Unknown]
  - Swelling [Unknown]
  - Insomnia [Unknown]
  - Rhinitis [Unknown]
